FAERS Safety Report 6967806-6 (Version None)
Quarter: 2010Q3

REPORT INFORMATION
  Report Type: 
  Country: None (occurrence: None)
  Receive Date: 20100907
  Receipt Date: 20100827
  Transmission Date: 20110219
  Serious: Yes (Hospitalization)
  Sender: FDA-Public Use
  Company Number: FR-BAYER-201037793GPV

PATIENT
  Age: 71 Year
  Sex: Female

DRUGS (7)
  1. GLUCOR [Suspect]
     Indication: TYPE 2 DIABETES MELLITUS
     Dosage: TOTAL DAILY DOSE: 150 MG  UNIT DOSE: 50 MG
     Route: 048
     Dates: start: 20100201
  2. VASTEN [Suspect]
     Indication: DYSLIPIDAEMIA
     Dosage: TOTAL DAILY DOSE: 20 MG  UNIT DOSE: 20 MG
     Route: 048
     Dates: start: 20100101, end: 20100430
  3. LERCANIDIPINE [Concomitant]
  4. KARDEGIC [Concomitant]
  5. MICARDIS HCT [Concomitant]
     Dosage: 80 MG/12.5 MG (HYDROCHLOROTHIAZIDE, TELMISARTAN )
  6. INIPOMP [Concomitant]
  7. PROZAC [Concomitant]

REACTIONS (1)
  - PURPURA [None]
